FAERS Safety Report 9885701 (Version 1)
Quarter: 2014Q1

REPORT INFORMATION
  Report Type: Spontaneous
  Country: FR (occurrence: FR)
  Receive Date: 20140210
  Receipt Date: 20140210
  Transmission Date: 20141002
  Serious: Yes (Hospitalization)
  Sender: FDA-Public Use
  Company Number: FR-PFIZER INC-2014033870

PATIENT
  Age: 26 Year
  Sex: Female
  Weight: 58 kg

DRUGS (10)
  1. NEURONTIN [Suspect]
     Indication: NEURALGIA
     Dosage: 600 MG, 3X/DAY
     Route: 048
  2. XANAX [Suspect]
     Indication: ANXIETY
     Dosage: 0.5 MG, DAILY (0.5 DF IN THE MORNING, 0.5 DF AT NOON, 1 DF IN THE EVENING)
     Route: 048
  3. CYMBALTA [Suspect]
     Indication: DEPRESSION
     Dosage: 60 MG, 1X/DAY
     Route: 048
  4. LAROXYL [Suspect]
     Indication: INSOMNIA
     Dosage: 40 MG/ML, 5 DROPS ONCE DAILY
     Route: 048
  5. IMOVANE [Suspect]
     Indication: INSOMNIA
     Dosage: 7.5 MG, 1X/DAY
     Route: 048
  6. TRANSIPEG [Suspect]
     Indication: CONSTIPATION
     Dosage: 11.8 G, AS NEEDED
     Route: 048
  7. DUROGESIC [Suspect]
     Indication: COMPLEX REGIONAL PAIN SYNDROME
     Dosage: 1 DF, EVERY THREE DAYS
     Route: 062
     Dates: end: 20130828
  8. KETAMINE [Suspect]
     Indication: COMPLEX REGIONAL PAIN SYNDROME
     Dosage: UNK
  9. KETAMINE [Suspect]
     Dosage: THIRD COURSE ON 17AUG2013, UNSPECIFIED DOSAGE
     Dates: start: 20130817
  10. KETAMINE [Suspect]
     Dosage: FOURTH COURSE ON 28AUG2013, UNSPECIFIED DOSE
     Dates: start: 20130828

REACTIONS (3)
  - Off label use [Recovered/Resolved]
  - Psychomotor hyperactivity [Recovered/Resolved]
  - Panic attack [Recovered/Resolved]
